FAERS Safety Report 19849560 (Version 1)
Quarter: 2021Q3

REPORT INFORMATION
  Report Type: Spontaneous
  Country: PT (occurrence: PT)
  Receive Date: 20210917
  Receipt Date: 20210917
  Transmission Date: 20211014
  Serious: Yes (Other)
  Sender: FDA-Public Use
  Company Number: NVSC2021PT208658

PATIENT
  Age: 55 Year
  Sex: Female

DRUGS (5)
  1. SEDOXIL [Interacting]
     Active Substance: MEXAZOLAM
     Indication: ANXIETY
     Dosage: 1 DF (ASNECESSARY) (1 MG/SOS TOOK 1 DF ON 26 AUG 2021)
     Route: 048
     Dates: start: 20210826
  2. PERINDOPRIL [Interacting]
     Active Substance: PERINDOPRIL
     Indication: HYPERTENSION
     Dosage: UNK
     Route: 048
  3. ESCITALOPRAM CLAMED [Interacting]
     Active Substance: ESCITALOPRAM OXALATE
     Indication: ANXIETY
     Dosage: 1 DF,QD
     Route: 048
     Dates: start: 20210826, end: 20210830
  4. ATORVASTATINA [Concomitant]
     Active Substance: ATORVASTATIN
     Indication: HYPERCHOLESTEROLAEMIA
     Dosage: UNK
     Route: 048
  5. BISOPROLOL [Suspect]
     Active Substance: BISOPROLOL
     Indication: ANXIETY
     Dosage: UNK
     Route: 048
     Dates: start: 20210826

REACTIONS (4)
  - Apathy [Recovering/Resolving]
  - Somnolence [Recovering/Resolving]
  - Tension [Recovering/Resolving]
  - Musculoskeletal stiffness [Recovering/Resolving]

NARRATIVE: CASE EVENT DATE: 20210830
